FAERS Safety Report 17213718 (Version 1)
Quarter: 2019Q4

REPORT INFORMATION
  Report Type: Spontaneous
  Country: US (occurrence: US)
  Receive Date: 20191206
  Receipt Date: 20191206
  Transmission Date: 20200122
  Serious: No
  Sender: FDA-Public Use
  Company Number: None

PATIENT
  Age: 12 Year
  Sex: Male

DRUGS (2)
  1. GUANFACINE HCL ER 1MG [Suspect]
     Active Substance: GUANFACINE
  2. LORAZEPAM 1MG [Suspect]
     Active Substance: LORAZEPAM

REACTIONS (1)
  - Product dispensing error [None]
